FAERS Safety Report 5071790-2 (Version None)
Quarter: 2006Q3

REPORT INFORMATION
  Report Type: 
  Country: None (occurrence: None)
  Receive Date: 20060801
  Receipt Date: 20060726
  Transmission Date: 20061208
  Serious: Yes (Life-Threatening)
  Sender: FDA-Public Use
  Company Number: 2006RR-03070

PATIENT
  Age: 40 Year
  Sex: Female

DRUGS (4)
  1. ZANTAC [Suspect]
     Indication: HIATUS HERNIA
     Dosage: 150 MG, BID, ORAL
     Route: 048
     Dates: start: 20050601, end: 20050601
  2. ZANTAC [Suspect]
     Indication: HIATUS HERNIA
     Dosage: 150 MG, BID, ORAL
     Route: 048
     Dates: start: 20050601, end: 20050601
  3. ZANTAC [Suspect]
     Indication: HIATUS HERNIA
     Dosage: 150 MG, BID, ORAL
     Route: 048
     Dates: start: 20050601, end: 20050601
  4. ZANTAC [Suspect]
     Dosage: 150 MG, BID, ORAL
     Route: 048
     Dates: start: 20050601, end: 20050601

REACTIONS (2)
  - ANAPHYLACTIC REACTION [None]
  - TOXIC SHOCK SYNDROME [None]
